FAERS Safety Report 6126189-4 (Version None)
Quarter: 2009Q1

REPORT INFORMATION
  Report Type: 
  Country: None (occurrence: None)
  Receive Date: 20090320
  Receipt Date: 20090316
  Transmission Date: 20090719
  Serious: Yes (Other)
  Sender: FDA-Public Use
  Company Number: B0563658A

PATIENT

DRUGS (4)
  1. ZANTAC [Suspect]
     Indication: DRUG USE FOR UNKNOWN INDICATION
     Route: 065
     Dates: end: 20090224
  2. DECADRON [Concomitant]
     Route: 065
  3. KYTRIL [Concomitant]
     Route: 065
  4. TAXOL [Concomitant]
     Route: 042

REACTIONS (1)
  - RHABDOMYOLYSIS [None]
